FAERS Safety Report 18211710 (Version 2)
Quarter: 2021Q3

REPORT INFORMATION
  Report Type: Report from Study
  Country: None (occurrence: CA)
  Receive Date: 20200831
  Receipt Date: 20210820
  Transmission Date: 20211014
  Serious: Yes (Hospitalization, Other)
  Sender: FDA-Public Use
  Company Number: CA-ABBVIE-20K-028-3543395-00

PATIENT
  Age: 47 Year
  Sex: Female

DRUGS (3)
  1. IMURAN [Concomitant]
     Active Substance: AZATHIOPRINE
     Indication: PRODUCT USED FOR UNKNOWN INDICATION
  2. HUMIRA [Suspect]
     Active Substance: ADALIMUMAB
     Indication: CROHN^S DISEASE
     Route: 058
  3. METHOTREXATE. [Concomitant]
     Active Substance: METHOTREXATE
     Indication: PRODUCT USED FOR UNKNOWN INDICATION

REACTIONS (32)
  - Aphthous ulcer [Not Recovered/Not Resolved]
  - General physical health deterioration [Unknown]
  - Erythema nodosum [Unknown]
  - Ulcer haemorrhage [Not Recovered/Not Resolved]
  - Joint swelling [Unknown]
  - Erythema [Not Recovered/Not Resolved]
  - Crohn^s disease [Not Recovered/Not Resolved]
  - Short-bowel syndrome [Not Recovered/Not Resolved]
  - Eye inflammation [Recovering/Resolving]
  - Joint range of motion decreased [Not Recovered/Not Resolved]
  - Impaired quality of life [Unknown]
  - Stress [Not Recovered/Not Resolved]
  - Neck pain [Unknown]
  - Pain in extremity [Unknown]
  - Diarrhoea [Unknown]
  - Inappropriate schedule of product administration [Unknown]
  - Hypophagia [Unknown]
  - Therapeutic response shortened [Unknown]
  - Cholecystectomy [Recovered/Resolved]
  - Hepatic enzyme increased [Unknown]
  - Skin erosion [Not Recovered/Not Resolved]
  - Arthritis [Unknown]
  - Eye swelling [Unknown]
  - Pain [Unknown]
  - Eye pain [Unknown]
  - Urticaria [Not Recovered/Not Resolved]
  - Impaired work ability [Unknown]
  - Infected skin ulcer [Not Recovered/Not Resolved]
  - Arthralgia [Unknown]
  - Back pain [Unknown]
  - Abdominal pain [Unknown]
  - Unevaluable event [Unknown]

NARRATIVE: CASE EVENT DATE: 2018
